FAERS Safety Report 12069672 (Version 1)
Quarter: 2016Q1

REPORT INFORMATION
  Report Type: Spontaneous
  Country: US (occurrence: US)
  Receive Date: 20160211
  Receipt Date: 20160211
  Transmission Date: 20160526
  Serious: No
  Sender: FDA-Public Use
  Company Number: US-PFIZER INC-2016075833

PATIENT
  Sex: Female

DRUGS (1)
  1. LYRICA [Suspect]
     Active Substance: PREGABALIN
     Indication: VULVOVAGINAL BURNING SENSATION
     Dosage: UNK

REACTIONS (2)
  - Product use issue [Unknown]
  - Dizziness [Unknown]
